FAERS Safety Report 24317067 (Version 1)
Quarter: 2024Q3

REPORT INFORMATION
  Report Type: Spontaneous
  Country: US (occurrence: US)
  Receive Date: 20240913
  Receipt Date: 20240913
  Transmission Date: 20241017
  Serious: Yes (Other)
  Sender: AMERICAN REGENT
  Company Number: US-AMERICAN REGENT INC-2024003457

PATIENT
  Sex: Female

DRUGS (1)
  1. ESTRADIOL VALERATE [Suspect]
     Active Substance: ESTRADIOL VALERATE
     Indication: Hormone replacement therapy
     Dosage: 30 MILLIGRAM
     Dates: start: 2022

REACTIONS (4)
  - Hormone level abnormal [Unknown]
  - Night sweats [Unknown]
  - Mood swings [Unknown]
  - Product use in unapproved indication [Unknown]

NARRATIVE: CASE EVENT DATE: 20220101
